FAERS Safety Report 25447746 (Version 1)
Quarter: 2025Q2

REPORT INFORMATION
  Report Type: Spontaneous
  Country: HR (occurrence: HR)
  Receive Date: 20250617
  Receipt Date: 20250617
  Transmission Date: 20250717
  Serious: Yes (Life-Threatening, Hospitalization, Other)
  Sender: FRESENIUS KABI
  Company Number: None

PATIENT
  Age: 19 Year
  Sex: Female
  Weight: 60 kg

DRUGS (5)
  1. SODIUM CHLORIDE [Suspect]
     Active Substance: SODIUM CHLORIDE
     Indication: Medication dilution
     Dosage: 0,9% NACI ON 500 ML (DILUTION)?FOA-SOLUTION FOR INJECTION
     Route: 042
     Dates: start: 20250522, end: 20250525
  2. AMOXICILLIN\CLAVULANIC ACID [Suspect]
     Active Substance: AMOXICILLIN\CLAVULANIC ACID
     Indication: Abscess
     Dosage: 1 DF= 1000 MG/200 MG = ONE VIAL CONTAINS 1000 MG OF AMOXICILLIN IN THE FORM OF AMOXICILLIN SODIUM AN
     Route: 042
     Dates: start: 20250526, end: 20250526
  3. AMOXICILLIN\CLAVULANIC ACID [Suspect]
     Active Substance: AMOXICILLIN\CLAVULANIC ACID
     Indication: Prophylaxis
     Dosage: 1 DF= 1000 MG/200 MG = ONE VIAL CONTAINS 1000 MG OF AMOXICILLIN IN THE FORM OF AMOXICILLIN SODIUM AN
     Route: 042
     Dates: start: 20250522, end: 20250525
  4. SODIUM CHLORIDE [Suspect]
     Active Substance: SODIUM CHLORIDE
     Indication: Medication dilution
     Dosage: 0,9% NACI ON 500 ML (DILUTION)?FOA-SOLUTION FOR INJECTION
     Route: 042
     Dates: start: 20250526, end: 20250526
  5. METRONIDAZOLE [Concomitant]
     Active Substance: METRONIDAZOLE
     Indication: Abscess
     Dosage: FOA-SOLUTION FOR INFUSION
     Route: 042
     Dates: start: 20250522

REACTIONS (9)
  - Chills [Recovering/Resolving]
  - Body temperature increased [Recovering/Resolving]
  - Mucosal discolouration [Recovering/Resolving]
  - Pallor [Recovering/Resolving]
  - Suspected product quality issue [Recovering/Resolving]
  - Hypertension [Recovering/Resolving]
  - Anaphylactic reaction [Recovering/Resolving]
  - Tachycardia [Recovering/Resolving]
  - Oxygen saturation decreased [Recovering/Resolving]

NARRATIVE: CASE EVENT DATE: 20250526
